FAERS Safety Report 17273357 (Version 1)
Quarter: 2020Q1

REPORT INFORMATION
  Report Type: Spontaneous
  Country: US (occurrence: US)
  Receive Date: 20200115
  Receipt Date: 20200115
  Transmission Date: 20200409
  Serious: No
  Sender: FDA-Public Use
  Company Number: US-BAYER-2020-001916

PATIENT
  Age: 73 Year
  Sex: Female

DRUGS (1)
  1. CLARITIN-D 24 HOUR [Suspect]
     Active Substance: LORATADINE\PSEUDOEPHEDRINE SULFATE
     Indication: DIZZINESS
     Dosage: 1 DF, QD
     Route: 048
     Dates: start: 20191226, end: 20191228

REACTIONS (5)
  - Palpitations [Recovered/Resolved]
  - Product use in unapproved indication [Unknown]
  - Insomnia [Recovered/Resolved]
  - Malaise [Recovered/Resolved]
  - Contraindicated product administered [Recovered/Resolved]

NARRATIVE: CASE EVENT DATE: 20191226
